FAERS Safety Report 9897953 (Version 1)
Quarter: 2014Q1

REPORT INFORMATION
  Report Type: Spontaneous
  Country: US (occurrence: US)
  Receive Date: 20140214
  Receipt Date: 20140214
  Transmission Date: 20141002
  Serious: No
  Sender: FDA-Public Use
  Company Number: US-PFIZER INC-2014043703

PATIENT
  Age: 27 Year
  Sex: Female

DRUGS (2)
  1. LYRICA [Suspect]
     Indication: FIBROMYALGIA
     Dosage: 300 MG, 2X/DAY
  2. LYRICA [Suspect]
     Indication: CONVULSION
     Dosage: 200 MG, DAILY
     Dates: end: 201402

REACTIONS (4)
  - Drug withdrawal syndrome [Unknown]
  - Headache [Unknown]
  - Malaise [Unknown]
  - Tremor [Unknown]
